FAERS Safety Report 18202602 (Version 2)
Quarter: 2020Q3

REPORT INFORMATION
  Report Type: Spontaneous
  Country: AU (occurrence: AU)
  Receive Date: 20200827
  Receipt Date: 20200904
  Transmission Date: 20201103
  Serious: Yes (Other)
  Sender: FDA-Public Use
  Company Number: AU-SA-2020SA223301

PATIENT

DRUGS (2)
  1. ALEMTUZUMAB [Suspect]
     Active Substance: ALEMTUZUMAB
     Dosage: UNK
     Route: 042
     Dates: start: 20140917, end: 2014
  2. ALEMTUZUMAB [Suspect]
     Active Substance: ALEMTUZUMAB
     Indication: MULTIPLE SCLEROSIS
     Dosage: UNK
     Route: 042
     Dates: start: 2015, end: 20150904

REACTIONS (3)
  - Neck pain [Not Recovered/Not Resolved]
  - Metastatic squamous cell carcinoma [Not Recovered/Not Resolved]
  - Granulomatous lymphadenitis [Not Recovered/Not Resolved]

NARRATIVE: CASE EVENT DATE: 2020
